FAERS Safety Report 4798926-2 (Version None)
Quarter: 2005Q4

REPORT INFORMATION
  Report Type: 
  Country: None (occurrence: None)
  Receive Date: 20051014
  Receipt Date: 20051007
  Transmission Date: 20060501
  Serious: Yes (Death, Other)
  Sender: FDA-Public Use
  Company Number: US-BRISTOL-MYERS SQUIBB COMPANY-13137575

PATIENT
  Age: 79 Year
  Sex: Male
  Weight: 54 kg

DRUGS (1)
  1. GLUCOPHAGE [Suspect]
     Indication: DIABETES MELLITUS

REACTIONS (2)
  - NEOPLASM MALIGNANT [None]
  - RESPIRATORY FAILURE [None]
